FAERS Safety Report 5219058-5 (Version None)
Quarter: 2007Q1

REPORT INFORMATION
  Report Type: 
  Country: None (occurrence: None)
  Receive Date: 20070125
  Receipt Date: 20070119
  Transmission Date: 20070707
  Serious: Yes (Hospitalization, Other)
  Sender: FDA-Public Use
  Company Number: US-ELI_LILLY_AND_COMPANY-US_990624427

PATIENT
  Age: 54 Year
  Sex: Male
  Weight: 100 kg

DRUGS (7)
  1. HUMALOG [Suspect]
     Indication: DIABETES MELLITUS
     Dosage: 5 U, 3/D
     Route: 058
     Dates: start: 19980622
  2. HUMULIN R [Suspect]
     Indication: DIABETES MELLITUS
     Dosage: 35 U, EACH MORNING
     Route: 058
     Dates: start: 19980622
  3. ILETIN [Suspect]
     Indication: DIABETES MELLITUS
     Dosage: UNK, UNKNOWN
     Dates: start: 19480101, end: 19900101
  4. TICLID [Concomitant]
     Dosage: UNK, UNKNOWN
     Route: 048
  5. DILANTIN [Concomitant]
     Indication: CONVULSION
     Dosage: UNK, UNKNOWN
     Dates: start: 19940501
  6. UNIVASC [Concomitant]
     Dosage: UNK, UNKNOWN
  7. NOVOLIN 50/50 [Concomitant]
     Indication: DIABETES MELLITUS
     Dosage: UNK, UNKNOWN
     Route: 058

REACTIONS (13)
  - BLOOD GLUCOSE INCREASED [None]
  - CEREBROVASCULAR ACCIDENT [None]
  - CONFUSIONAL STATE [None]
  - CONVULSION [None]
  - CORONARY ARTERY OCCLUSION [None]
  - DRUG INEFFECTIVE [None]
  - FALL [None]
  - HEMIPARESIS [None]
  - MOBILITY DECREASED [None]
  - SUBDURAL HAEMATOMA [None]
  - UPPER LIMB FRACTURE [None]
  - VISUAL FIELD DEFECT [None]
  - WEIGHT DECREASED [None]
